FAERS Safety Report 5500629-3 (Version None)
Quarter: 2007Q4

REPORT INFORMATION
  Report Type: 
  Country: None (occurrence: None)
  Receive Date: 20071018
  Receipt Date: 20070507
  Transmission Date: 20080405
  Serious: Yes (Death, Other)
  Sender: FDA-Public Use
  Company Number: 2006153635

PATIENT
  Age: 68 Year
  Sex: Male

DRUGS (16)
  1. NEURONTIN [Suspect]
     Indication: DEPRESSION
  2. NEURONTIN [Suspect]
     Indication: PAIN
  3. OXYCODONE HCL [Concomitant]
  4. OXYCONTIN [Concomitant]
  5. REMERON [Concomitant]
  6. DOXEPIN HCL [Concomitant]
  7. SYNTHROID [Concomitant]
  8. MECLIZINE [Concomitant]
  9. RANITIDINE [Concomitant]
  10. PRILOSEC [Concomitant]
  11. AMBIEN [Concomitant]
  12. PROPOXYPHENE (DEXTROPROPOXYPHENE) [Concomitant]
  13. ALPRAZOLAM [Concomitant]
  14. FLUCONAZOLE [Concomitant]
  15. ALLEGRA (FEXOFENADINE HYDROCHLORIDE) [Concomitant]
  16. MYCELEX [Concomitant]

REACTIONS (4)
  - ANXIETY [None]
  - COMPLETED SUICIDE [None]
  - DRUG INEFFECTIVE [None]
  - SUICIDAL IDEATION [None]
